FAERS Safety Report 9981216 (Version 1)
Quarter: 2014Q1

REPORT INFORMATION
  Report Type: Spontaneous
  Country: US (occurrence: None)
  Receive Date: 20140306
  Receipt Date: 20140306
  Transmission Date: 20141002
  Serious: No
  Sender: FDA-Public Use
  Company Number: None

PATIENT
  Age: 54 Year
  Sex: Male
  Weight: 92.99 kg

DRUGS (1)
  1. OXYMETAZOLINE HYDROCHLORIDE [Suspect]
     Indication: NASAL CONGESTION
     Dosage: 2-3 SPRAY EACH NOSTRIL
     Dates: start: 20130615, end: 20130830

REACTIONS (1)
  - Anosmia [None]
